FAERS Safety Report 20448677 (Version 2)
Quarter: 2022Q1

REPORT INFORMATION
  Report Type: Spontaneous
  Country: US (occurrence: US)
  Receive Date: 20220209
  Receipt Date: 20220211
  Transmission Date: 20220423
  Serious: Yes (Life-Threatening, Other)
  Sender: FDA-Public Use
  Company Number: US-PFIZER INC-202200176933

PATIENT
  Age: 75 Year
  Sex: Male
  Weight: 23.4 kg

DRUGS (2)
  1. PROPOFOL [Suspect]
     Active Substance: PROPOFOL
     Dosage: 70 MG (OVER THE FIRST TEN MINUTES OF THE PROCEDURE IN BOLUSES OF 10 MG-20 MG)
     Route: 040
  2. AMPICILLIN [Concomitant]
     Active Substance: AMPICILLIN
     Indication: Bacteraemia
     Dosage: UNK

REACTIONS (4)
  - Cardiac arrest [Recovering/Resolving]
  - Acute right ventricular failure [Recovering/Resolving]
  - Hypotension [Recovering/Resolving]
  - Bradycardia [Recovering/Resolving]
